FAERS Safety Report 5588209-5 (Version None)
Quarter: 2008Q1

REPORT INFORMATION
  Report Type: 
  Country: None (occurrence: None)
  Receive Date: 20080108
  Receipt Date: 20071219
  Transmission Date: 20080703
  Serious: Yes (Hospitalization)
  Sender: FDA-Public Use
  Company Number: 6040022

PATIENT
  Age: 62 Year
  Sex: Female

DRUGS (7)
  1. BISOPROLOL FUMARATE [Suspect]
     Indication: HYPERTENSION
     Dosage: 5 MG ORAL
     Route: 048
     Dates: start: 20071028, end: 20071128
  2. DIOVAN [Suspect]
     Indication: ARTERIOSCLEROSIS
     Dosage: 160 MG ORAL
     Route: 048
     Dates: start: 20071028, end: 20071128
  3. LESCOL XL [Suspect]
     Indication: DIASTOLIC DYSFUNCTION
     Dosage: 80 MG ORAL
     Route: 048
     Dates: start: 20071028, end: 20071128
  4. VOLATEN [Concomitant]
  5. SPASMEX      (TROSPIUM CHLORIDE) [Concomitant]
  6. PEPTORAN    (RANITIDINE) [Concomitant]
  7. DIAZEPAM [Concomitant]

REACTIONS (10)
  - ABDOMINAL PAIN UPPER [None]
  - ALANINE AMINOTRANSFERASE INCREASED [None]
  - ASPARTATE AMINOTRANSFERASE INCREASED [None]
  - BLOOD ALKALINE PHOSPHATASE INCREASED [None]
  - BLOOD BILIRUBIN INCREASED [None]
  - BLOOD LACTATE DEHYDROGENASE INCREASED [None]
  - C-REACTIVE PROTEIN INCREASED [None]
  - FATIGUE [None]
  - GAMMA-GLUTAMYLTRANSFERASE INCREASED [None]
  - LIVER DISORDER [None]
